FAERS Safety Report 25140219 (Version 1)
Quarter: 2025Q1

REPORT INFORMATION
  Report Type: Spontaneous
  Country: AU (occurrence: AU)
  Receive Date: 20250331
  Receipt Date: 20250331
  Transmission Date: 20250409
  Serious: Yes (Other)
  Sender: REGENERON
  Company Number: AU-BAYER-2025A039660

PATIENT
  Sex: Male

DRUGS (2)
  1. EYLEA [Suspect]
     Active Substance: AFLIBERCEPT
     Indication: Diabetic retinal oedema
     Dosage: 2 MG, Q8WK, BOTH EYES, 40 MG/ML, SOLUTION FOR INJECTION
     Route: 031
     Dates: start: 2022
  2. EYLEA [Suspect]
     Active Substance: AFLIBERCEPT
     Dates: start: 20250319, end: 20250319

REACTIONS (2)
  - Chest pain [Recovered/Resolved]
  - Troponin T increased [Unknown]

NARRATIVE: CASE EVENT DATE: 20250317
